FAERS Safety Report 6349393-9 (Version None)
Quarter: 2009Q3

REPORT INFORMATION
  Report Type: 
  Country: None (occurrence: None)
  Receive Date: 20090911
  Receipt Date: 20090901
  Transmission Date: 20100115
  Serious: Yes (Hospitalization)
  Sender: FDA-Public Use
  Company Number: JP-PFIZER INC-2009266837

PATIENT
  Age: 40 Year

DRUGS (2)
  1. CELECOX [Suspect]
     Dosage: UNK
  2. ALL OTHER THERAPEUTIC PRODUCTS [Concomitant]

REACTIONS (1)
  - TOXIC SKIN ERUPTION [None]
